FAERS Safety Report 11002953 (Version 1)
Quarter: 2015Q2

REPORT INFORMATION
  Report Type: Spontaneous
  Country: US (occurrence: US)
  Receive Date: 20150408
  Receipt Date: 20150408
  Transmission Date: 20150821
  Serious: Yes (Hospitalization, Other)
  Sender: FDA-Public Use
  Company Number: US-AMGEN-USASP2015033099

PATIENT
  Age: 59 Year
  Sex: Female

DRUGS (2)
  1. ENBREL [Suspect]
     Active Substance: ETANERCEPT
     Indication: RHEUMATOID ARTHRITIS
     Dosage: 25 MG, 2 TIMES/WK
     Route: 065
     Dates: start: 19990701
  2. PREDNISONE. [Concomitant]
     Active Substance: PREDNISONE
     Dosage: UNK

REACTIONS (13)
  - Intestinal obstruction [Recovered/Resolved]
  - Cholelithiasis [Recovered/Resolved]
  - Foreign body [Recovered/Resolved]
  - Incision site inflammation [Recovered/Resolved]
  - Exostosis [Recovered/Resolved]
  - Haematocrit decreased [Recovered/Resolved]
  - Joint lock [Not Recovered/Not Resolved]
  - Chondropathy [Recovered/Resolved]
  - Arthralgia [Recovered/Resolved]
  - Gastric haemorrhage [Recovered/Resolved]
  - Joint injury [Not Recovered/Not Resolved]
  - Fall [Unknown]
  - Abdominal pain upper [Recovered/Resolved]

NARRATIVE: CASE EVENT DATE: 2006
